FAERS Safety Report 19553801 (Version 1)
Quarter: 2021Q3

REPORT INFORMATION
  Report Type: Spontaneous
  Country: SE (occurrence: SE)
  Receive Date: 20210714
  Receipt Date: 20210714
  Transmission Date: 20211014
  Serious: Yes (Other)
  Sender: FDA-Public Use
  Company Number: SE-GLAXOSMITHKLINE-SE2021150798

PATIENT
  Age: 19 Year
  Sex: Female
  Weight: 47 kg

DRUGS (3)
  1. MELATONIN [Concomitant]
     Active Substance: MELATONIN
     Indication: PRODUCT USED FOR UNKNOWN INDICATION
     Dosage: 5 MG, QD(5 MG 1 TABLETS 1 TIME / DAY)
     Route: 048
     Dates: start: 2019
  2. SLINDA [Concomitant]
     Active Substance: DROSPIRENONE
     Indication: PRODUCT USED FOR UNKNOWN INDICATION
     Dosage: 4 MG, QD(4  MG 1 TABLETS 1 TIME / DAY)
     Route: 048
     Dates: start: 2020
  3. VOXRA [Suspect]
     Active Substance: BUPROPION HYDROCHLORIDE
     Indication: DEPRESSION
     Dosage: 300 MG, QD(300 MG 1 TABLETS 1 TIME / DAY)
     Route: 048
     Dates: start: 20210311

REACTIONS (9)
  - Suicidal ideation [Recovering/Resolving]
  - Depression [Recovering/Resolving]
  - Paranoia [Recovered/Resolved]
  - Weight decreased [Recovering/Resolving]
  - Obsessive-compulsive disorder [Recovering/Resolving]
  - Disturbance in attention [Not Recovered/Not Resolved]
  - Decreased appetite [Recovering/Resolving]
  - Insomnia [Recovering/Resolving]
  - Anxiety [Recovered/Resolved]

NARRATIVE: CASE EVENT DATE: 20210311
